FAERS Safety Report 18979907 (Version 1)
Quarter: 2021Q1

REPORT INFORMATION
  Report Type: Spontaneous
  Country: US (occurrence: US)
  Receive Date: 20210305
  Receipt Date: 20210305
  Transmission Date: 20210420
  Serious: Yes (Other)
  Sender: FDA-Public Use
  Company Number: None

PATIENT
  Age: 80 Year
  Sex: Female
  Weight: 70.65 kg

DRUGS (17)
  1. ROSUVASTATIN 10MG [Concomitant]
     Active Substance: ROSUVASTATIN
  2. ESCITALOPRAM [Concomitant]
     Active Substance: ESCITALOPRAM OXALATE
  3. COLACE [Concomitant]
     Active Substance: DOCUSATE SODIUM
  4. FISH OIL 300MG [Concomitant]
  5. KEPPRA [Concomitant]
     Active Substance: LEVETIRACETAM
  6. DEXAMETHASONE 2MG [Concomitant]
  7. MIRTAZAPINE 15MG [Concomitant]
     Active Substance: MIRTAZAPINE
  8. ACIDOPHILUS 0.5MG [Concomitant]
  9. BRAFTOVI [Suspect]
     Active Substance: ENCORAFENIB
     Indication: MALIGNANT MELANOMA
     Route: 048
     Dates: start: 20191212, end: 20210207
  10. COENZYME Q10 50MG [Concomitant]
  11. SUPER B COMPLEX [Concomitant]
     Active Substance: CYANOCOBALAMIN\DEXPANTHENOL\NIACINAMIDE\PYRIDOXINE HYDROCHLORIDE\RIBOFLAVIN 5^-PHOSPHATE SODIUM\THIAMINE HYDROCHLORIDE\VITAMIN B COMPLEX
  12. FLAX SEED OIL 1300MG [Concomitant]
  13. OXYBUTYNIN 5MG [Concomitant]
     Active Substance: OXYBUTYNIN
  14. VITAMIN D 5000UNIT [Concomitant]
  15. MEKTOVI [Suspect]
     Active Substance: BINIMETINIB
     Indication: MALIGNANT MELANOMA
     Route: 048
     Dates: start: 20191212, end: 20210207
  16. OMEPRAZOLE 20MG [Concomitant]
     Active Substance: OMEPRAZOLE
  17. AVASTIN [Concomitant]
     Active Substance: BEVACIZUMAB

REACTIONS (1)
  - Hospice care [None]

NARRATIVE: CASE EVENT DATE: 20210207
